FAERS Safety Report 18946118 (Version 1)
Quarter: 2021Q1

REPORT INFORMATION
  Report Type: Spontaneous
  Country: US (occurrence: US)
  Receive Date: 20210226
  Receipt Date: 20210226
  Transmission Date: 20210420
  Serious: No
  Sender: FDA-Public Use
  Company Number: US-AMNEAL PHARMACEUTICALS-2020-AMRX-02094

PATIENT

DRUGS (1)
  1. METFORMIN HYDROCHLORIDE. [Suspect]
     Active Substance: METFORMIN HYDROCHLORIDE
     Indication: TYPE 2 DIABETES MELLITUS
     Dosage: 2 TABLETS, 2 /DAY
     Route: 048
     Dates: start: 20200315, end: 20200515

REACTIONS (7)
  - Dizziness [Unknown]
  - Chest pain [Unknown]
  - Palpitations [Unknown]
  - Chest discomfort [Unknown]
  - Osteoma [Recovering/Resolving]
  - Poor quality sleep [Unknown]
  - Heart rate irregular [Unknown]

NARRATIVE: CASE EVENT DATE: 2020
